FAERS Safety Report 9211491 (Version 2)
Quarter: 2013Q2

REPORT INFORMATION
  Report Type: Spontaneous
  Country: US (occurrence: US)
  Receive Date: 20130404
  Receipt Date: 20130423
  Transmission Date: 20140414
  Serious: Yes (Hospitalization)
  Sender: FDA-Public Use
  Company Number: US-AMGEN-USASP2013015639

PATIENT
  Age: 59 Year
  Sex: Female
  Weight: 129 kg

DRUGS (18)
  1. ENBREL [Suspect]
     Indication: RHEUMATOID ARTHRITIS
     Dosage: 50 MG, QWK
     Route: 058
     Dates: start: 20130228
  2. PLAQUENIL                          /00072602/ [Concomitant]
     Dosage: 200 MG, 1 TAB BID
     Route: 048
     Dates: start: 20130411
  3. DEXILANT [Concomitant]
     Dosage: 30 MG,1 CAP ONCE A DAY
     Dates: start: 20130411
  4. FLONASE [Concomitant]
     Dosage: 50 MUG, 2 SPRAYS BID
     Route: 045
  5. HYDROXYZINE PAMOATE [Concomitant]
     Dosage: 25 MG, 1 CAP 3 TIMES A DAY
     Route: 048
  6. ZYRTEC [Concomitant]
     Dosage: 10 MG, 1 TAB ONCE A DAY
     Route: 048
  7. ALLEGRA [Concomitant]
     Dosage: 30 MG, 2 TABS BID
     Route: 048
  8. METHYLPREDNISOLONE [Concomitant]
     Dosage: 8 MG, DAILY AS DIRECTED
     Route: 048
  9. LEVOTHYROXINE SODIUM [Concomitant]
     Dosage: 112 MUG, 1 TAB ONCE A DAY
  10. DYRENIUM [Concomitant]
     Dosage: 100 MG, 1 CAP ONCE A DAY
  11. ATENOLOL [Concomitant]
     Dosage: 50 MG, 1 TAB ONCE A DAY
     Route: 048
  12. LASIX                              /00032601/ [Concomitant]
     Dosage: 40 MG, 1 TAB 3 TIMES A DAY
     Route: 048
  13. VITAMIN C                          /00008001/ [Concomitant]
     Dosage: 1000 MUG, 1 TAB 2 TIMES A DAY
     Route: 048
  14. COLCHICINE [Concomitant]
     Dosage: 0.6 MG, 1 TAB ONCE A DAY
     Route: 048
  15. POTASSIUM CHLORIDE [Concomitant]
     Dosage: 40 MEQ, 1 TAB TWICE A DAY
     Route: 048
  16. CIMETIDINE [Concomitant]
     Dosage: 800 MG, 1 TAB TWICE A DAY
     Route: 048
  17. METOLAZONE [Concomitant]
     Dosage: 25 MG, 1 TAB ONCE A DAY
     Route: 048
  18. NORTRIPTYLINE HCL [Concomitant]
     Dosage: 50 MG, 2 CAP ONCE A DAY
     Route: 048

REACTIONS (1)
  - Pruritus generalised [Not Recovered/Not Resolved]
